FAERS Safety Report 5893405-3 (Version None)
Quarter: 2008Q3

REPORT INFORMATION
  Report Type: 
  Country: None (occurrence: None)
  Receive Date: 20080919
  Receipt Date: 20080905
  Transmission Date: 20090109
  Serious: Yes (Hospitalization)
  Sender: FDA-Public Use
  Company Number: 200808IM000241

PATIENT
  Age: 41 Year
  Sex: Female
  Weight: 88.9 kg

DRUGS (3)
  1. ACTIMMUNE [Suspect]
     Indication: HEPATITIS C
     Dosage: 100 UG, PER WEEK: 3X/WEEK
     Dates: start: 20050201, end: 20050913
  2. PEGINTERFERON GAMMA 2A [Suspect]
     Indication: HEPATITIS C
     Dosage: 180 UG, PER WEEK: 1/WEEK
     Dates: start: 20041012, end: 20050913
  3. RIBAVIRIN [Suspect]
     Indication: HEPATITIS C
     Dosage: 1200 MG, PER WEEK: 2X/DAY
     Dates: start: 20041012, end: 20050913

REACTIONS (3)
  - HAEMATEMESIS [None]
  - HEPATIC CIRRHOSIS [None]
  - OESOPHAGEAL VARICEAL LIGATION [None]
